FAERS Safety Report 19787599 (Version 2)
Quarter: 2021Q3

REPORT INFORMATION
  Report Type: Spontaneous
  Country: RU (occurrence: RU)
  Receive Date: 20210903
  Receipt Date: 20210915
  Transmission Date: 20211014
  Serious: Yes (Life-Threatening, Hospitalization, Other)
  Sender: FDA-Public Use
  Company Number: RU-PFIZER INC-202101088893

PATIENT
  Age: 28 Year
  Sex: Female
  Weight: 60 kg

DRUGS (13)
  1. PREDNISOLONE. [Suspect]
     Active Substance: PREDNISOLONE
     Indication: ARTHRITIS REACTIVE
  2. OMEZ [OMEPRAZOLE SODIUM] [Suspect]
     Active Substance: OMEPRAZOLE SODIUM
     Indication: ARTHRITIS REACTIVE
     Dosage: 20 MG, 1X/DAY
     Dates: start: 20191106
  3. PREDNISOLONE. [Suspect]
     Active Substance: PREDNISOLONE
     Indication: ARTHRITIS REACTIVE
     Dosage: 5 MG, 2X/DAY
  4. PLAQUENIL [Suspect]
     Active Substance: HYDROXYCHLOROQUINE SULFATE
     Indication: ARTHRITIS REACTIVE
     Dosage: 2 DF(INCREASING FROM 09/11/2019 TO 2 TABLETS)
     Dates: start: 20191109
  5. SOLU?MEDROL [Suspect]
     Active Substance: METHYLPREDNISOLONE SODIUM SUCCINATE
     Indication: ARTHRITIS REACTIVE
     Dosage: 125 MG(NO. 1)
  6. OMEZ [OMEPRAZOLE SODIUM] [Suspect]
     Active Substance: OMEPRAZOLE SODIUM
     Indication: ARTHRITIS REACTIVE
  7. PREDNISOLONE. [Suspect]
     Active Substance: PREDNISOLONE
     Indication: ARTHRITIS REACTIVE
     Dosage: 2 DF, 1X/DAY(2 TABLETS INCREASING TO 5 TABLETS PER DAY )
     Dates: start: 20191029, end: 2019
  8. METIPRED [Suspect]
     Active Substance: METHYLPREDNISOLONE
     Indication: ARTHRITIS REACTIVE
     Dosage: UNK
     Dates: start: 2019
  9. SOLU?MEDROL [Suspect]
     Active Substance: METHYLPREDNISOLONE SODIUM SUCCINATE
     Indication: ARTHRITIS REACTIVE
     Dosage: 250 MG(NO. 5)
     Dates: start: 20191029
  10. PREDNISOLONE. [Suspect]
     Active Substance: PREDNISOLONE
     Indication: ARTHRITIS REACTIVE
     Dosage: 60 MG, ONCE
     Route: 030
     Dates: start: 20191029
  11. PREDNISOLONE. [Suspect]
     Active Substance: PREDNISOLONE
     Dosage: 5 DF, 1X/DAY(2 TABLETS INCREASING TO 5 TABLETS PER DAY )
     Dates: start: 2019
  12. BYSTRUMGEL [Suspect]
     Active Substance: KETOPROFEN
     Dosage: UNK
     Dates: start: 201910
  13. PLAQUENIL [Suspect]
     Active Substance: HYDROXYCHLOROQUINE SULFATE
     Indication: ARTHRITIS REACTIVE
     Dosage: 200 MG(1 DF)
     Dates: start: 20191029, end: 20191108

REACTIONS (7)
  - Staphylococcal infection [Unknown]
  - Toxic epidermal necrolysis [Recovering/Resolving]
  - Conjunctivitis [Recovering/Resolving]
  - Stevens-Johnson syndrome [Recovering/Resolving]
  - Multi-organ disorder [Recovering/Resolving]
  - Toxicity to various agents [Recovering/Resolving]
  - Maternal exposure during pregnancy [Unknown]

NARRATIVE: CASE EVENT DATE: 201910
